FAERS Safety Report 13386786 (Version 2)
Quarter: 2017Q2

REPORT INFORMATION
  Report Type: Spontaneous
  Country: US (occurrence: US)
  Receive Date: 20170330
  Receipt Date: 20170508
  Transmission Date: 20170830
  Serious: No
  Sender: FDA-Public Use
  Company Number: US-PFIZER INC-2017138149

PATIENT
  Sex: Female

DRUGS (1)
  1. XELJANZ [Suspect]
     Active Substance: TOFACITINIB CITRATE
     Dosage: 5 MG, 2X/DAY

REACTIONS (20)
  - Weight increased [Unknown]
  - Condition aggravated [Unknown]
  - Sleep disorder [Unknown]
  - Pruritus [Unknown]
  - Nervousness [Unknown]
  - Peripheral swelling [Unknown]
  - Glycosylated haemoglobin increased [Unknown]
  - Tongue erythema [Unknown]
  - Blood glucose increased [Unknown]
  - Wound [Unknown]
  - Tenderness [Unknown]
  - Oral disorder [Unknown]
  - Dyspnoea exertional [Unknown]
  - Arthralgia [Unknown]
  - Swelling [Unknown]
  - Anxiety [Unknown]
  - Oedema [Unknown]
  - Excoriation [Unknown]
  - Fluid retention [Unknown]
  - Crying [Unknown]
